FAERS Safety Report 6618129-6 (Version None)
Quarter: 2010Q1

REPORT INFORMATION
  Report Type: 
  Country: None (occurrence: None)
  Receive Date: 20100308
  Receipt Date: 20100225
  Transmission Date: 20100710
  Serious: Yes (Other)
  Sender: FDA-Public Use
  Company Number: CA-JNJCH-2010001625

PATIENT
  Age: 23 Year
  Sex: Female

DRUGS (2)
  1. ROLAIDS [Suspect]
     Indication: DRUG USE FOR UNKNOWN INDICATION
     Dosage: TEXT:UNKNOWN
     Route: 048
  2. ROLAIDS [Suspect]
     Dosage: TEXT:UNKNOWN
     Route: 048

REACTIONS (5)
  - CONDITION AGGRAVATED [None]
  - GASTROINTESTINAL INFLAMMATION [None]
  - GASTROINTESTINAL ULCER [None]
  - MALAISE [None]
  - PRODUCT QUALITY ISSUE [None]
